FAERS Safety Report 21033787 (Version 1)
Quarter: 2022Q3

REPORT INFORMATION
  Report Type: Report from Study
  Country: JP (occurrence: JP)
  Receive Date: 20220701
  Receipt Date: 20220701
  Transmission Date: 20221027
  Serious: Yes (Other)
  Sender: FDA-Public Use
  Company Number: JP-VIIV HEALTHCARE LIMITED-JP2021JPN261522

PATIENT

DRUGS (1)
  1. ZIDOVUDINE [Suspect]
     Active Substance: ZIDOVUDINE
     Dosage: 1.4 ML, BID
     Dates: start: 20210428, end: 20210528

REACTIONS (1)
  - Anal abscess [Recovering/Resolving]

NARRATIVE: CASE EVENT DATE: 20210525
